FAERS Safety Report 19394350 (Version 1)
Quarter: 2021Q2

REPORT INFORMATION
  Report Type: Report from Study
  Country: IT (occurrence: IT)
  Receive Date: 20210609
  Receipt Date: 20210609
  Transmission Date: 20210717
  Serious: Yes (Hospitalization)
  Sender: FDA-Public Use
  Company Number: IT-GW PHARMA-201912ITGW4671

PATIENT

DRUGS (5)
  1. DEPAKINE [VALPROATE SODIUM] [Concomitant]
     Active Substance: VALPROATE SODIUM
     Indication: SEVERE MYOCLONIC EPILEPSY OF INFANCY
     Dosage: 1000 MILLIGRAM, QD (500MG BID)
     Route: 065
  2. TEGRETOL [Concomitant]
     Active Substance: CARBAMAZEPINE
     Indication: SEVERE MYOCLONIC EPILEPSY OF INFANCY
     Dosage: 400 MILLIGRAM, QD (200MG BID)
     Route: 065
  3. EPIDIOLEX [Suspect]
     Active Substance: CANNABIDIOL
     Dosage: 15MG/KG, 500 + 200 MILLIGRAM, BID
     Route: 065
     Dates: start: 20190904, end: 20191010
  4. EPIDIOLEX [Suspect]
     Active Substance: CANNABIDIOL
     Indication: SEVERE MYOCLONIC EPILEPSY OF INFANCY
     Dosage: 20MG/KG, 1000 MILLIGRAM, QD (500 MG X 2)
     Route: 065
     Dates: start: 20190610, end: 20190904
  5. KEPPRA [Concomitant]
     Active Substance: LEVETIRACETAM
     Indication: SEVERE MYOCLONIC EPILEPSY OF INFANCY
     Dosage: 1750 MILLIGRAM, QD (750 +1000MG)
     Route: 065

REACTIONS (3)
  - Status epilepticus [Recovered/Resolved]
  - Diarrhoea [Recovered/Resolved]
  - Status epilepticus [Recovered/Resolved]

NARRATIVE: CASE EVENT DATE: 201908
